FAERS Safety Report 11168292 (Version 1)
Quarter: 2015Q2

REPORT INFORMATION
  Report Type: Spontaneous
  Country: US (occurrence: None)
  Receive Date: 20150604
  Receipt Date: 20150604
  Transmission Date: 20150821
  Serious: Yes (Life-Threatening)
  Sender: FDA-Public Use
  Company Number: None

PATIENT
  Age: 48 Year
  Sex: Male
  Weight: 163.3 kg

DRUGS (8)
  1. VOLTAREN [Concomitant]
     Active Substance: DICLOFENAC SODIUM
  2. IRON [Concomitant]
     Active Substance: IRON
  3. STOOL SOFTNERS [Concomitant]
  4. PLAVIX [Suspect]
     Active Substance: CLOPIDOGREL BISULFATE
     Indication: CORONARY ARTERY RESTENOSIS
     Route: 048
  5. ACIPHEX [Concomitant]
     Active Substance: RABEPRAZOLE SODIUM
  6. GERITOL [Concomitant]
     Active Substance: MINERALS\VITAMINS
  7. TRAMADOL [Concomitant]
     Active Substance: TRAMADOL
  8. VALSARTAN. [Concomitant]
     Active Substance: VALSARTAN

REACTIONS (3)
  - Dizziness [None]
  - Product substitution issue [None]
  - Intra-abdominal haemorrhage [None]
